FAERS Safety Report 22057170 (Version 2)
Quarter: 2023Q2

REPORT INFORMATION
  Report Type: Other
  Country: CA (occurrence: CA)
  Receive Date: 20230303
  Receipt Date: 20230523
  Transmission Date: 20230722
  Serious: No
  Sender: FDA-Public Use
  Company Number: CA-TOLMAR, INC.-23CA038863

PATIENT
  Sex: Male

DRUGS (3)
  1. ELIGARD [Suspect]
     Active Substance: LEUPROLIDE ACETATE
     Indication: Prostate cancer
     Dosage: 22.5 MILLIGRAM, Q 3 MONTH
     Route: 058
     Dates: start: 20220822
  2. ELIGARD [Suspect]
     Active Substance: LEUPROLIDE ACETATE
     Dosage: 22.5 MILLIGRAM, Q 3 MONTH
     Route: 058
     Dates: start: 20230206
  3. ELIGARD [Suspect]
     Active Substance: LEUPROLIDE ACETATE
     Dosage: 22.5 MILLIGRAM, Q 3 MONTH
     Route: 058
     Dates: start: 20230501

REACTIONS (1)
  - Hot flush [Not Recovered/Not Resolved]
